FAERS Safety Report 11895107 (Version 1)
Quarter: 2016Q1

REPORT INFORMATION
  Report Type: Spontaneous
  Country: US (occurrence: None)
  Receive Date: 20160106
  Receipt Date: 20160106
  Transmission Date: 20160526
  Serious: Yes (Disabling)
  Sender: FDA-Public Use
  Company Number: None

PATIENT
  Age: 14 Year
  Sex: Male

DRUGS (3)
  1. ZOMETA [Suspect]
     Active Substance: ZOLEDRONIC ACID
     Indication: OSTEOPOROSIS
     Dosage: INFUSION  UNSURE INTO A VEIN
     Route: 042
     Dates: start: 20150220
  2. VITAMIN D [Concomitant]
     Active Substance: CHOLECALCIFEROL
  3. TUMS [Concomitant]
     Active Substance: CALCIUM CARBONATE

REACTIONS (6)
  - Arthralgia [None]
  - Pyrexia [None]
  - Blood phosphorus increased [None]
  - Pain [None]
  - Gait disturbance [None]
  - Quality of life decreased [None]

NARRATIVE: CASE EVENT DATE: 20150220
